FAERS Safety Report 9753264 (Version 3)
Quarter: 2014Q1

REPORT INFORMATION
  Report Type: Spontaneous
  Country: AT (occurrence: AT)
  Receive Date: 20131213
  Receipt Date: 20140131
  Transmission Date: 20141002
  Serious: Yes (Death, Hospitalization, Other)
  Sender: FDA-Public Use
  Company Number: AT-NOVOPROD-395120

PATIENT
  Age: 74 Year
  Sex: Female

DRUGS (10)
  1. MIXTARD 30 INNOLET [Suspect]
     Indication: TYPE 2 DIABETES MELLITUS
     Dosage: UNK
     Route: 065
     Dates: start: 201308, end: 20130921
  2. AMARYL [Concomitant]
     Dosage: 2 MG, BID
     Route: 048
  3. LESCOL MR [Concomitant]
     Dosage: 80 MG, QD
  4. NEURONTIN [Concomitant]
     Dosage: 300 MG, BID
  5. FOSAMAX [Concomitant]
     Dosage: 70 MG, QW
  6. OLEOVIT D3 [Concomitant]
     Dosage: 20 GTT, QD
     Route: 048
  7. MOTILIUM                           /00498201/ [Concomitant]
     Dosage: 10 MG, BID
  8. DAPOTUM                            /00000602/ [Concomitant]
     Dosage: 25 UG ONCE IN 3 WEEKS
  9. PLAVIX [Concomitant]
     Dosage: 75 MG, QD
  10. PANTOPRAZOLE SODIUM SESQUIHYDRATE [Concomitant]
     Dosage: 20 MG, QD

REACTIONS (5)
  - Death [Fatal]
  - Dysarthria [Recovered/Resolved]
  - Blood glucose fluctuation [Fatal]
  - Product quality issue [Unknown]
  - Drug ineffective [Unknown]
